FAERS Safety Report 25112185 (Version 1)
Quarter: 2025Q1

REPORT INFORMATION
  Report Type: Report from Study
  Country: EG (occurrence: EG)
  Receive Date: 20250324
  Receipt Date: 20250324
  Transmission Date: 20250408
  Serious: Yes (Other)
  Sender: ABBVIE
  Company Number: EG-ABBVIE-6176024

PATIENT
  Sex: Female

DRUGS (6)
  1. RINVOQ [Suspect]
     Active Substance: UPADACITINIB
     Indication: Rheumatoid arthritis
     Dosage: 1 TABLET
     Route: 048
     Dates: start: 202503
  2. CORTISONE [Concomitant]
     Active Substance: CORTISONE
     Indication: Product used for unknown indication
  3. RIVAROXABAN [Concomitant]
     Active Substance: RIVAROXABAN
     Indication: Anticoagulant therapy
     Route: 048
     Dates: start: 202503
  4. NEXIUM [Concomitant]
     Active Substance: ESOMEPRAZOLE MAGNESIUM
     Indication: Product used for unknown indication
     Route: 048
  5. Coloverin [Concomitant]
     Indication: Product used for unknown indication
     Route: 048
  6. PENTASA [Concomitant]
     Active Substance: MESALAMINE
     Indication: Product used for unknown indication
     Route: 048

REACTIONS (14)
  - Pulmonary fibrosis [Not Recovered/Not Resolved]
  - Dizziness [Unknown]
  - Red blood cell sedimentation rate increased [Not Recovered/Not Resolved]
  - Alopecia [Unknown]
  - C-reactive protein increased [Not Recovered/Not Resolved]
  - Nasopharyngitis [Not Recovered/Not Resolved]
  - Mobility decreased [Not Recovered/Not Resolved]
  - Rheumatoid arthritis [Not Recovered/Not Resolved]
  - Dyspnoea [Unknown]
  - Tachycardia [Unknown]
  - Blood glucose decreased [Unknown]
  - Vomiting [Unknown]
  - Diarrhoea [Unknown]
  - Hypotension [Unknown]

NARRATIVE: CASE EVENT DATE: 20250301
